FAERS Safety Report 9553086 (Version 1)
Quarter: 2013Q3

REPORT INFORMATION
  Report Type: Spontaneous
  Country: US (occurrence: None)
  Receive Date: 20130912
  Receipt Date: 20130912
  Transmission Date: 20140515
  Serious: Yes (Other)
  Sender: FDA-Public Use
  Company Number: 2013037906

PATIENT
  Sex: Female

DRUGS (1)
  1. HIZENTRA [Suspect]
     Route: 058

REACTIONS (4)
  - Abasia [None]
  - Paraesthesia [None]
  - Hypoaesthesia [None]
  - Disease recurrence [None]
